APPROVED DRUG PRODUCT: IOPAMIDOL-300 IN PLASTIC CONTAINER
Active Ingredient: IOPAMIDOL
Strength: 61%
Dosage Form/Route: INJECTABLE;INJECTION
Application: A074637 | Product #001
Applicant: HOSPIRA WORLDWIDE, INC
Approved: Apr 3, 1997 | RLD: No | RS: No | Type: DISCN